FAERS Safety Report 12286154 (Version 1)
Quarter: 2016Q2

REPORT INFORMATION
  Report Type: Spontaneous
  Country: US (occurrence: US)
  Receive Date: 20160420
  Receipt Date: 20160420
  Transmission Date: 20160815
  Serious: Yes (Other)
  Sender: FDA-Public Use
  Company Number: US-009507513-1604USA011021

PATIENT
  Sex: Female

DRUGS (2)
  1. INTRON A [Suspect]
     Active Substance: INTERFERON ALFA-2B
     Indication: NEOPLASM MALIGNANT
     Dosage: UNK
  2. TEMODAR [Suspect]
     Active Substance: TEMOZOLOMIDE
     Dosage: UNK
     Route: 048

REACTIONS (1)
  - Recurrent cancer [Unknown]

NARRATIVE: CASE EVENT DATE: 201602
